FAERS Safety Report 8695188 (Version 2)
Quarter: 2013Q4

REPORT INFORMATION
  Report Type: Spontaneous
  Country: US (occurrence: US)
  Receive Date: 20120731
  Receipt Date: 20131107
  Transmission Date: 20140711
  Serious: Yes (Disabling, Other)
  Sender: FDA-Public Use
  Company Number: US-009507513-1207USA009834

PATIENT
  Sex: Female

DRUGS (1)
  1. ZOCOR [Suspect]
     Indication: BLOOD CHOLESTEROL
     Dosage: UNK, HS
     Route: 048

REACTIONS (5)
  - Pain in extremity [Unknown]
  - Muscle disorder [Unknown]
  - Renal disorder [Unknown]
  - Pain [Unknown]
  - Gait disturbance [Unknown]
